FAERS Safety Report 17415720 (Version 1)
Quarter: 2020Q1

REPORT INFORMATION
  Report Type: Spontaneous
  Country: US (occurrence: US)
  Receive Date: 20200213
  Receipt Date: 20200213
  Transmission Date: 20200409
  Serious: No
  Sender: FDA-Public Use
  Company Number: US-SA-2020SA033582

PATIENT
  Age: 12 Year
  Sex: Male
  Weight: 67.12 kg

DRUGS (4)
  1. NORMAL SALINE [Concomitant]
     Active Substance: SODIUM CHLORIDE
     Dosage: 25 ML, UNK
     Route: 065
     Dates: start: 20191218, end: 20191218
  2. FABRAZYME [Suspect]
     Active Substance: AGALSIDASE BETA
     Indication: FABRY^S DISEASE
     Dosage: 55 MG/100 ML, QOW
     Route: 041
     Dates: start: 20191106, end: 20191218
  3. NORMAL SALINE [Concomitant]
     Active Substance: SODIUM CHLORIDE
     Dosage: 100 ML, UNK
     Route: 065
     Dates: start: 20191218, end: 20191218
  4. FABRAZYME [Suspect]
     Active Substance: AGALSIDASE BETA
     Dosage: 55 UNK
     Route: 041
     Dates: start: 20191218

REACTIONS (3)
  - Flushing [Recovered/Resolved]
  - Urticaria [Recovered/Resolved]
  - Dyspnoea [Recovered/Resolved]

NARRATIVE: CASE EVENT DATE: 20191218
